FAERS Safety Report 6256038-5 (Version None)
Quarter: 2009Q2

REPORT INFORMATION
  Report Type: 
  Country: None (occurrence: None)
  Receive Date: 20090630
  Receipt Date: 20090630
  Transmission Date: 20091009
  Serious: Yes (Hospitalization, Other)
  Sender: FDA-Public Use
  Company Number: None

PATIENT
  Age: 61 Year
  Sex: Female
  Weight: 117.9352 kg

DRUGS (1)
  1. ENJUVIA [Suspect]
     Indication: HYSTERECTOMY
     Dosage: 0.625MG DAILY PO
     Route: 048
     Dates: start: 20090623, end: 20090626

REACTIONS (5)
  - ANGIOEDEMA [None]
  - ANXIETY [None]
  - BLOOD PRESSURE INCREASED [None]
  - HYPOAESTHESIA FACIAL [None]
  - RESPIRATORY RATE INCREASED [None]
